FAERS Safety Report 24993915 (Version 2)
Quarter: 2025Q2

REPORT INFORMATION
  Report Type: Report from Study
  Country: JP (occurrence: JP)
  Receive Date: 20250221
  Receipt Date: 20250411
  Transmission Date: 20250717
  Serious: Yes (Death)
  Sender: GILEAD
  Company Number: JP-GILEAD-2023-0619600

PATIENT
  Age: 35 Year
  Sex: Male

DRUGS (1)
  1. BICTEGRAVIR\EMTRICITABINE\TENOFOVIR ALAFENAMIDE [Suspect]
     Active Substance: BICTEGRAVIR\EMTRICITABINE\TENOFOVIR ALAFENAMIDE
     Indication: HIV infection
     Dosage: 1 DOSAGE FORM, QD
     Route: 048
     Dates: start: 20220328, end: 20241028

REACTIONS (2)
  - Death [Fatal]
  - Helicobacter infection [Unknown]

NARRATIVE: CASE EVENT DATE: 20230520
